FAERS Safety Report 6554683-0 (Version None)
Quarter: 2010Q1

REPORT INFORMATION
  Report Type: 
  Country: None (occurrence: None)
  Receive Date: 20100122
  Receipt Date: 20100108
  Transmission Date: 20100710
  Serious: Yes (Death, Other)
  Sender: FDA-Public Use
  Company Number: CL-72-2010

PATIENT
  Age: 17 Year
  Sex: Female

DRUGS (1)
  1. METRONIDAZOLE [Suspect]
     Dosage: 2G ONCE ORAL ROUTE
     Route: 048
     Dates: start: 20070226, end: 20070226

REACTIONS (1)
  - ADVERSE EVENT [None]
